FAERS Safety Report 25135373 (Version 1)
Quarter: 2025Q1

REPORT INFORMATION
  Report Type: Report from Study
  Country: US (occurrence: US)
  Receive Date: 20250328
  Receipt Date: 20250328
  Transmission Date: 20250409
  Serious: Yes (Hospitalization, Other)
  Sender: SANOFI AVENTIS
  Company Number: US-SA-2025SA086354

PATIENT
  Age: 83 Year
  Sex: Male

DRUGS (2)
  1. DUPILUMAB [Suspect]
     Active Substance: DUPILUMAB
     Indication: Chronic obstructive pulmonary disease
     Dosage: 300 MG, QOW
     Route: 058
     Dates: start: 20250310
  2. BREZTRI [Concomitant]
     Active Substance: BUDESONIDE\FORMOTEROL\GLYCOPYRROLATE

REACTIONS (13)
  - Seizure [Unknown]
  - Hypoxia [Unknown]
  - Upper respiratory tract infection [Unknown]
  - Rhinitis [Unknown]
  - Pulmonary mass [Unknown]
  - Cough [Not Recovered/Not Resolved]
  - Pain [Unknown]
  - Burning sensation [Unknown]
  - Decreased appetite [Unknown]
  - Dyspnoea [Recovering/Resolving]
  - Pruritus [Unknown]
  - Insomnia [Unknown]
  - Diarrhoea [Unknown]

NARRATIVE: CASE EVENT DATE: 20250301
